FAERS Safety Report 5102504-5 (Version None)
Quarter: 2006Q3

REPORT INFORMATION
  Report Type: 
  Country: None (occurrence: None)
  Receive Date: 20060908
  Receipt Date: 20060830
  Transmission Date: 20061208
  Serious: Yes (Other)
  Sender: FDA-Public Use
  Company Number: 229312

PATIENT
  Sex: Male

DRUGS (8)
  1. LUCENTIS [Suspect]
     Indication: MACULAR DEGENERATION
     Dosage: INTRAVITREAL
     Route: 050
     Dates: start: 20060725
  2. SIMVASTATIN [Concomitant]
  3. OCUVITE (ASCORBIC ACID, COPPER NOS, LUTEIN, SELENIUM NOS, VITAMIN A, V [Concomitant]
  4. HYDROCHLOROTHIAZIDE [Concomitant]
  5. DILTIAZEM HYDROCHLORIDE [Concomitant]
  6. ASPIRIN [Concomitant]
  7. CENTRUM SILVER (MINERALS NOS, MULTIVITAMINS NOS) [Concomitant]
  8. ARTIFICAL TEARS [Concomitant]

REACTIONS (2)
  - EYE HAEMORRHAGE [None]
  - HEADACHE [None]
